FAERS Safety Report 13170682 (Version 1)
Quarter: 2017Q1

REPORT INFORMATION
  Report Type: Spontaneous
  Country: US (occurrence: US)
  Receive Date: 20170201
  Receipt Date: 20170201
  Transmission Date: 20170428
  Serious: No
  Sender: FDA-Public Use
  Company Number: US-ASTRAZENECA-2017SE08055

PATIENT
  Age: 61 Year

DRUGS (3)
  1. SEROQUEL XR [Suspect]
     Active Substance: QUETIAPINE FUMARATE
     Route: 048
     Dates: start: 2010
  2. SEROQUEL XR [Suspect]
     Active Substance: QUETIAPINE FUMARATE
     Dosage: GENERIC
     Route: 048
     Dates: start: 201505
  3. SEROQUEL XR [Suspect]
     Active Substance: QUETIAPINE FUMARATE
     Dosage: GENERIC
     Route: 048
     Dates: start: 20161122, end: 20161126

REACTIONS (9)
  - Headache [Unknown]
  - Nervousness [Unknown]
  - Mood swings [Unknown]
  - Pain [Unknown]
  - Abdominal discomfort [Unknown]
  - Renal disorder [Unknown]
  - Feeling abnormal [Unknown]
  - Malaise [Unknown]
  - Panic attack [Unknown]
